FAERS Safety Report 10717985 (Version 3)
Quarter: 2015Q3

REPORT INFORMATION
  Report Type: Spontaneous
  Country: US (occurrence: US)
  Receive Date: 20150116
  Receipt Date: 20150702
  Transmission Date: 20151125
  Serious: Yes (Other)
  Sender: FDA-Public Use
  Company Number: US-ALLERGAN-1500512US

PATIENT
  Age: 62 Year
  Sex: Female

DRUGS (3)
  1. LUMIGAN [Suspect]
     Active Substance: BIMATOPROST
     Indication: INTRAOCULAR PRESSURE INCREASED
     Dosage: UNK UNK, BI-WEEKLY
     Route: 047
     Dates: start: 20141006, end: 20150226
  2. LUMIGAN [Suspect]
     Active Substance: BIMATOPROST
     Indication: GLAUCOMA
     Dosage: UNK UNK, QHS
     Route: 047
     Dates: start: 20120501
  3. INSULIN [Concomitant]
     Active Substance: INSULIN NOS
     Indication: DIABETES MELLITUS

REACTIONS (8)
  - Blood glucose increased [Recovered/Resolved]
  - Eyelid disorder [Recovered/Resolved]
  - Xanthopsia [Unknown]
  - Retinal haemorrhage [Unknown]
  - Fear of death [Unknown]
  - Visual impairment [Unknown]
  - Inappropriate schedule of drug administration [Unknown]
  - Skin hyperpigmentation [Unknown]

NARRATIVE: CASE EVENT DATE: 201501
